FAERS Safety Report 17716407 (Version 1)
Quarter: 2020Q2

REPORT INFORMATION
  Report Type: Report from Study
  Country: NL (occurrence: NL)
  Receive Date: 20200428
  Receipt Date: 20200428
  Transmission Date: 20200714
  Serious: Yes (Other)
  Sender: FDA-Public Use
  Company Number: NL-UCBSA-2019046657

PATIENT
  Sex: Female

DRUGS (6)
  1. BRIVARACETAM [Suspect]
     Active Substance: BRIVARACETAM
     Indication: EPILEPSY
     Dosage: 12.5 MILLIGRAM, 2X/DAY (BID)
     Dates: start: 20181127, end: 20181203
  2. CLONAZEPAN [Concomitant]
     Active Substance: CLONAZEPAM
     Indication: EPILEPSY
     Dosage: 0.8 MILLIGRAM, AS NEEDED (PRN)
     Dates: start: 20120603
  3. LAMOTRIGINE. [Concomitant]
     Active Substance: LAMOTRIGINE
     Dosage: 25 MILLIGRAM, ONCE DAILY (QD)
     Dates: start: 20180405
  4. NITRAZEPAM [Concomitant]
     Active Substance: NITRAZEPAM
     Indication: EPILEPSY
     Dosage: 5 MILLIGRAM, ONCE DAILY (QD)
     Dates: start: 20120601
  5. BRIVARACETAM [Suspect]
     Active Substance: BRIVARACETAM
     Dosage: 12.5 MILLIGRAM, 2X/DAY (BID)
     Dates: start: 20181210, end: 20181212
  6. LAMOTRIGINE. [Concomitant]
     Active Substance: LAMOTRIGINE
     Indication: EPILEPSY
     Dosage: 100 MILLIGRAM, 2X/DAY (BID)
     Dates: start: 20140111

REACTIONS (4)
  - Adverse event [Unknown]
  - Off label use [Unknown]
  - Seizure [Unknown]
  - Drug ineffective [Unknown]

NARRATIVE: CASE EVENT DATE: 20181127
